FAERS Safety Report 5406779-4 (Version None)
Quarter: 2007Q3

REPORT INFORMATION
  Report Type: 
  Country: None (occurrence: None)
  Receive Date: 20070807
  Receipt Date: 20070730
  Transmission Date: 20080115
  Serious: Yes (Other)
  Sender: FDA-Public Use
  Company Number: PHBS2007JP12896

PATIENT
  Age: 57 Year
  Sex: Male

DRUGS (12)
  1. LASIX [Concomitant]
     Dosage: 20 MG/DAY
     Route: 048
     Dates: start: 20070612, end: 20070720
  2. ALDACTONE [Concomitant]
     Dosage: 25 MG/DAY
     Route: 048
     Dates: start: 20070620, end: 20070720
  3. TENORMIN [Concomitant]
     Dosage: 25 MG/DAY
     Route: 048
     Dates: start: 20040101, end: 20070720
  4. MICARDIS [Concomitant]
     Dosage: 20 MG/DAY
     Route: 048
     Dates: start: 20040101, end: 20070720
  5. WARFARIN SODIUM [Concomitant]
     Dosage: 3 MG/DAY
     Route: 048
     Dates: start: 20070607, end: 20070620
  6. UNASYN [Concomitant]
     Dosage: 6 G/DAY
     Route: 048
     Dates: start: 20070602, end: 20070609
  7. GENTACIN [Concomitant]
     Dosage: 80 MG/DAY
     Route: 041
     Dates: start: 20070602, end: 20070609
  8. PROPYLTHIOURACIL [Concomitant]
     Dosage: 300 MG/DAY
     Route: 048
     Dates: start: 20040101, end: 20070720
  9. MUCOSTA [Concomitant]
     Dosage: 300 MG/DAY
     Route: 048
     Dates: start: 20070518, end: 20070720
  10. SIGMART [Concomitant]
     Dosage: 15 MG/DAY
     Route: 048
     Dates: start: 20040101, end: 20070720
  11. BEPRICOR [Concomitant]
     Dosage: 150 MG/DAY
     Route: 048
     Dates: start: 20070702, end: 20070720
  12. NITRODERM [Suspect]
     Indication: ANGINA PECTORIS
     Dosage: 1 PATCH/DAY
     Route: 062
     Dates: start: 20070713

REACTIONS (3)
  - PLATELET COUNT DECREASED [None]
  - THROMBOCYTOPENIC PURPURA [None]
  - WHITE BLOOD CELL COUNT DECREASED [None]
